FAERS Safety Report 16148999 (Version 1)
Quarter: 2019Q2

REPORT INFORMATION
  Report Type: Spontaneous
  Country: ES (occurrence: ES)
  Receive Date: 20190402
  Receipt Date: 20190402
  Transmission Date: 20190711
  Serious: Yes (Hospitalization)
  Sender: FDA-Public Use
  Company Number: ES-TEVA-2019-ES-1031544

PATIENT
  Age: 64 Year
  Sex: Male

DRUGS (8)
  1. CLOMETIAZOLE [Suspect]
     Active Substance: CLOMETHIAZOLE
     Dosage: 192 MG EVERY 8 HOURS
     Route: 048
     Dates: start: 20190118, end: 20190218
  2. ENALAPRIL TEVA [Suspect]
     Active Substance: ENALAPRIL MALEATE
     Indication: CARDIAC FAILURE
     Dosage: 5 MG EVERY 12 HOURS
     Route: 048
     Dates: start: 20190215, end: 20190218
  3. OMEPRAZOL [Concomitant]
     Active Substance: OMEPRAZOLE
     Dosage: 20 MG EACH 24 H
     Route: 048
     Dates: start: 20190118
  4. BEMIPARINA [Concomitant]
     Active Substance: BEMIPARIN SODIUM
     Dosage: 2500
  5. ESPIRONOLACTONA 25 MG [Suspect]
     Active Substance: SPIRONOLACTONE
     Dosage: 25 MG EACH 24 H
     Route: 048
     Dates: start: 20190213, end: 20190218
  6. PARACETAMOL [Concomitant]
     Active Substance: ACETAMINOPHEN
     Dosage: 1G EVERY 8 HOURS
     Dates: start: 20190130
  7. FUROSEMIDA [Concomitant]
     Active Substance: FUROSEMIDE
     Dosage: 40-20-0
  8. PREDNISONA [Suspect]
     Active Substance: PREDNISONE
     Route: 048
     Dates: start: 20190211, end: 20190219

REACTIONS (3)
  - Hypertransaminasaemia [Recovering/Resolving]
  - Hepatitis [Recovering/Resolving]
  - Jaundice [Recovering/Resolving]

NARRATIVE: CASE EVENT DATE: 20190215
